FAERS Safety Report 4890258-7 (Version None)
Quarter: 2006Q1

REPORT INFORMATION
  Report Type: 
  Country: None (occurrence: None)
  Receive Date: 20060124
  Receipt Date: 20050824
  Transmission Date: 20060701
  Serious: Yes (Hospitalization)
  Sender: FDA-Public Use
  Company Number: US-MERCK-0508USA04268

PATIENT
  Age: 53 Year
  Sex: Male
  Weight: 98 kg

DRUGS (2)
  1. VIOXX [Suspect]
     Indication: ARTHRITIS
     Route: 048
     Dates: start: 19991026, end: 20040930
  2. VIOXX [Suspect]
     Indication: ANKYLOSING SPONDYLITIS
     Route: 048
     Dates: start: 19991026, end: 20040930

REACTIONS (7)
  - ACUTE MYOCARDIAL INFARCTION [None]
  - BLOOD TRIGLYCERIDES INCREASED [None]
  - CARDIOMYOPATHY [None]
  - CORONARY ARTERY DISEASE [None]
  - OCCULT BLOOD [None]
  - OCCULT BLOOD POSITIVE [None]
  - VENTRICULAR HYPOKINESIA [None]
